FAERS Safety Report 15318766 (Version 1)
Quarter: 2018Q3

REPORT INFORMATION
  Report Type: Spontaneous
  Country: US (occurrence: US)
  Receive Date: 20180818
  Receipt Date: 20180818
  Transmission Date: 20181010
  Serious: Yes (Life-Threatening, Disabling, Other)
  Sender: FDA-Public Use
  Company Number: None

PATIENT
  Age: 66 Year
  Sex: Female
  Weight: 84.6 kg

DRUGS (6)
  1. LAVASTATIN [Concomitant]
  2. IRON [Concomitant]
     Active Substance: IRON
  3. VALSARTAN AND HYDROCHLOROTHIAZIDE [Suspect]
     Active Substance: HYDROCHLOROTHIAZIDE\VALSARTAN
     Indication: HYPERTENSION
     Dosage: ?          QUANTITY:1 TABLET(S);?
     Route: 048
     Dates: start: 20110101, end: 20180818
  4. DULOXETINE. [Concomitant]
     Active Substance: DULOXETINE
  5. VITAMIN B12 [Concomitant]
     Active Substance: CYANOCOBALAMIN
  6. AMBIEN [Concomitant]
     Active Substance: ZOLPIDEM TARTRATE

REACTIONS (4)
  - Neoplasm malignant [None]
  - Metastases to lung [None]
  - Metastases to spleen [None]
  - Malignant melanoma [None]

NARRATIVE: CASE EVENT DATE: 20180724
